FAERS Safety Report 14542448 (Version 1)
Quarter: 2018Q1

REPORT INFORMATION
  Report Type: Spontaneous
  Country: FR (occurrence: FR)
  Receive Date: 20180216
  Receipt Date: 20180216
  Transmission Date: 20180509
  Serious: Yes (Life-Threatening, Hospitalization, Other)
  Sender: FDA-Public Use
  Company Number: FR-OTSUKA-DJ201405589

PATIENT

DRUGS (6)
  1. ABILIFY [Suspect]
     Active Substance: ARIPIPRAZOLE
     Indication: ABNORMAL BEHAVIOUR
     Route: 048
     Dates: start: 20140610, end: 20140613
  2. LYSANXIA [Suspect]
     Active Substance: PRAZEPAM
     Indication: SUICIDAL IDEATION
  3. LYSANXIA [Suspect]
     Active Substance: PRAZEPAM
     Indication: ABNORMAL BEHAVIOUR
     Route: 048
     Dates: start: 20140610, end: 20140613
  4. ABILIFY [Suspect]
     Active Substance: ARIPIPRAZOLE
     Indication: DELIRIUM
  5. ABILIFY [Suspect]
     Active Substance: ARIPIPRAZOLE
     Indication: SUICIDAL IDEATION
  6. LYSANXIA [Suspect]
     Active Substance: PRAZEPAM
     Indication: DELIRIUM

REACTIONS (5)
  - Acute kidney injury [Recovering/Resolving]
  - Off label use [Unknown]
  - Acute pulmonary oedema [Recovering/Resolving]
  - Extrapyramidal disorder [Recovering/Resolving]
  - Neuroleptic malignant syndrome [Recovering/Resolving]

NARRATIVE: CASE EVENT DATE: 201406
